FAERS Safety Report 6548652-4 (Version None)
Quarter: 2010Q1

REPORT INFORMATION
  Report Type: 
  Country: None (occurrence: None)
  Receive Date: 20100124
  Receipt Date: 20090810
  Transmission Date: 20100710
  Serious: No
  Sender: FDA-Public Use
  Company Number: US-ALLERGAN-0913511US

PATIENT
  Age: 77 Year
  Sex: Male

DRUGS (2)
  1. RESTASIS [Suspect]
     Indication: DRY EYE
  2. SYNTHROID [Concomitant]
     Indication: BASEDOW'S DISEASE

REACTIONS (1)
  - LACRIMATION INCREASED [None]
